FAERS Safety Report 9495753 (Version 3)
Quarter: 2014Q2

REPORT INFORMATION
  Report Type: Report from Study
  Country: ZA (occurrence: ZA)
  Receive Date: 20130903
  Receipt Date: 20140404
  Transmission Date: 20141212
  Serious: No
  Sender: FDA-Public Use
  Company Number: ZA-009507513-1302ZAF011792

PATIENT
  Age: 43 Year
  Sex: Female
  Weight: 70 kg

DRUGS (6)
  1. SYCREST [Suspect]
     Indication: BIPOLAR DISORDER
     Dosage: 5 MG, QD
     Route: 048
     Dates: start: 20130320, end: 20130622
  2. SYCREST [Suspect]
     Indication: MANIA
  3. EPILIM [Suspect]
     Indication: BIPOLAR DISORDER
     Dosage: 900 MG, QD
     Route: 048
     Dates: start: 201206
  4. CAMCOLIT [Concomitant]
     Indication: BIPOLAR DISORDER
     Dosage: 600 MG, QD
     Route: 048
     Dates: start: 201206
  5. XANOR [Concomitant]
     Indication: BIPOLAR DISORDER
     Dosage: 1 MG, QD
     Route: 048
     Dates: start: 20130125
  6. NEURONTIN [Concomitant]
     Dosage: 900 MG, QD
     Route: 048

REACTIONS (8)
  - Lymphadenopathy [Not Recovered/Not Resolved]
  - Parotid gland enlargement [Unknown]
  - Parotid lipomatosis [Unknown]
  - Salivary gland enlargement [Not Recovered/Not Resolved]
  - Oedema peripheral [Recovering/Resolving]
  - Tremor [Recovering/Resolving]
  - Akathisia [Not Recovered/Not Resolved]
  - Swelling face [Unknown]
